FAERS Safety Report 5779538-0 (Version None)
Quarter: 2008Q2

REPORT INFORMATION
  Report Type: 
  Country: None (occurrence: None)
  Receive Date: 20080619
  Receipt Date: 20080611
  Transmission Date: 20081010
  Serious: Yes (Other)
  Sender: FDA-Public Use
  Company Number: US-PFIZER INC-2008003331

PATIENT
  Sex: Female

DRUGS (6)
  1. AMLODIPINE [Suspect]
  2. CELEBREX [Suspect]
  3. BENICAR [Suspect]
  4. PREDNISOLONE ACETATE [Suspect]
  5. ALISKIREN [Suspect]
  6. DRUG, UNSPECIFIED [Concomitant]

REACTIONS (6)
  - ASTHMA [None]
  - CATARACT [None]
  - FACIAL PALSY [None]
  - MALAISE [None]
  - OEDEMA PERIPHERAL [None]
  - SWELLING FACE [None]
